FAERS Safety Report 10652360 (Version 5)
Quarter: 2015Q3

REPORT INFORMATION
  Report Type: Report from Study
  Country: US (occurrence: US)
  Receive Date: 20141215
  Receipt Date: 20150706
  Transmission Date: 20151125
  Serious: Yes (Other)
  Sender: FDA-Public Use
  Company Number: US-SA-2014SA141944

PATIENT
  Age: 62 Year
  Sex: Female

DRUGS (2)
  1. AUBAGIO [Suspect]
     Active Substance: TERIFLUNOMIDE
     Indication: MULTIPLE SCLEROSIS
     Route: 048
     Dates: end: 20150629
  2. AMPYRA [Suspect]
     Active Substance: DALFAMPRIDINE
     Indication: MULTIPLE SCLEROSIS
     Route: 048
     Dates: start: 20141113, end: 201503

REACTIONS (10)
  - Hair texture abnormal [Recovering/Resolving]
  - Urinary incontinence [Not Recovered/Not Resolved]
  - Gait disturbance [Unknown]
  - Fall [Unknown]
  - Compression fracture [Unknown]
  - Alopecia [Unknown]
  - Alopecia [Recovering/Resolving]
  - Balance disorder [Not Recovered/Not Resolved]
  - Hair texture abnormal [Recovering/Resolving]
  - Hypoaesthesia [Unknown]

NARRATIVE: CASE EVENT DATE: 2014
